FAERS Safety Report 14156012 (Version 2)
Quarter: 2017Q4

REPORT INFORMATION
  Report Type: Report from Study
  Country: CA (occurrence: CA)
  Receive Date: 20171103
  Receipt Date: 20171120
  Transmission Date: 20180321
  Serious: Yes (Death, Hospitalization)
  Sender: FDA-Public Use
  Company Number: CA-ASTRAZENECA-2017SF11430

PATIENT
  Age: 69 Year
  Sex: Female

DRUGS (9)
  1. AZD2281 [Suspect]
     Active Substance: OLAPARIB
     Indication: PANCREATIC CARCINOMA METASTATIC
     Route: 048
     Dates: start: 20170927, end: 20171010
  2. COVERSYL [Concomitant]
     Active Substance: PERINDOPRIL
     Indication: HYPERTENSION
     Route: 048
     Dates: end: 20171029
  3. DIAMICRON MR [Concomitant]
     Active Substance: GLICLAZIDE
     Indication: GLUCOSE TOLERANCE IMPAIRED
     Route: 048
     Dates: end: 20171029
  4. LOPERAMIDE [Concomitant]
     Active Substance: LOPERAMIDE
     Indication: DIARRHOEA
     Dosage: 2.0MG AS REQUIRED
     Route: 048
     Dates: end: 20171029
  5. PANTOPRAZOLE [Concomitant]
     Active Substance: PANTOPRAZOLE
     Indication: GASTROOESOPHAGEAL REFLUX DISEASE
     Route: 048
     Dates: end: 20171029
  6. ROSUVASTATIN. [Concomitant]
     Active Substance: ROSUVASTATIN
     Indication: PROPHYLAXIS
     Route: 048
     Dates: end: 20171029
  7. MORPHINE SULFATE. [Concomitant]
     Active Substance: MORPHINE SULFATE
     Indication: PAIN
     Route: 048
     Dates: end: 20171028
  8. AZD2281 [Suspect]
     Active Substance: OLAPARIB
     Indication: PANCREATIC CARCINOMA METASTATIC
     Route: 048
     Dates: start: 20171017, end: 20171019
  9. METFORMIN [Concomitant]
     Active Substance: METFORMIN HYDROCHLORIDE
     Indication: GLUCOSE TOLERANCE IMPAIRED
     Route: 048
     Dates: end: 20171029

REACTIONS (3)
  - Abdominal distension [Not Recovered/Not Resolved]
  - Fatigue [Not Recovered/Not Resolved]
  - Dehydration [Not Recovered/Not Resolved]

NARRATIVE: CASE EVENT DATE: 20171024
